FAERS Safety Report 8289842-2 (Version None)
Quarter: 2012Q2

REPORT INFORMATION
  Report Type: 
  Country: None (occurrence: None)
  Receive Date: 20120417
  Receipt Date: 20120410
  Transmission Date: 20120825
  Serious: No
  Sender: FDA-Public Use
  Company Number: US-PFIZER INC-2012089640

PATIENT
  Sex: Female
  Weight: 86.168 kg

DRUGS (1)
  1. PROTONIX [Suspect]
     Indication: ULCER HAEMORRHAGE
     Dosage: UNK, 1X/DAY
     Route: 048
     Dates: start: 20090101

REACTIONS (1)
  - HERPES ZOSTER [None]
